FAERS Safety Report 8353348-2 (Version None)
Quarter: 2012Q2

REPORT INFORMATION
  Report Type: 
  Country: None (occurrence: None)
  Receive Date: 20120511
  Receipt Date: 20120430
  Transmission Date: 20120825
  Serious: Yes (Death, Other)
  Sender: FDA-Public Use
  Company Number: PHHY2012DE039888

PATIENT
  Age: 93 Year
  Sex: Female

DRUGS (2)
  1. RIVASTIGMINE [Suspect]
     Indication: DEMENTIA ALZHEIMER'S TYPE
     Dosage: 4.6 MG\24H (5CM2)
     Route: 062
  2. RIVASTIGMINE [Suspect]
     Dosage: 9.5MG\24H (10CM2)
     Route: 062

REACTIONS (2)
  - COMPLETED SUICIDE [None]
  - HALLUCINATION [None]
